FAERS Safety Report 7622985-2 (Version None)
Quarter: 2011Q3

REPORT INFORMATION
  Report Type: 
  Country: None (occurrence: None)
  Receive Date: 20110720
  Receipt Date: 20110711
  Transmission Date: 20111222
  Serious: Yes (Other)
  Sender: FDA-Public Use
  Company Number: GB-NOVOPROD-331559

PATIENT
  Sex: Female
  Weight: 104 kg

DRUGS (6)
  1. CANDESARTAN CILEXETIL [Concomitant]
     Dosage: 32 MG, QD
     Dates: start: 20090204
  2. VICTOZA [Suspect]
     Indication: PRODUCT USED FOR UNKNOWN INDICATION
     Dosage: 1.2 MG, QD
     Route: 058
     Dates: start: 20110207
  3. BENDROFLUMETHIAZIDE [Concomitant]
     Dosage: 2.5 MG, QD
     Dates: start: 20050314
  4. ATORVASTATIN [Concomitant]
     Dosage: 40 MG, QD
     Dates: start: 20050314
  5. MIRTAZAPINE [Concomitant]
     Dosage: 20 MG, QD
     Dates: start: 20080424
  6. METFORMIN HCL [Concomitant]
     Dosage: 3 G, QD
     Dates: start: 20040202

REACTIONS (1)
  - ARTHRALGIA [None]
